FAERS Safety Report 24073165 (Version 1)
Quarter: 2024Q3

REPORT INFORMATION
  Report Type: Spontaneous
  Country: FI (occurrence: FI)
  Receive Date: 20240710
  Receipt Date: 20240710
  Transmission Date: 20241017
  Serious: Yes (Death)
  Sender: BRAEBURN PHARMACEUTICALS
  Company Number: FI-CAMURUS AB-FI-CAM-24-00842

PATIENT

DRUGS (1)
  1. BUPRENORPHINE [Suspect]
     Active Substance: BUPRENORPHINE
     Indication: Product used for unknown indication
     Dosage: UNK UNK, UNK
     Route: 058

REACTIONS (1)
  - Death [Fatal]
